FAERS Safety Report 16203807 (Version 2)
Quarter: 2019Q2

REPORT INFORMATION
  Report Type: Report from Study
  Country: FR (occurrence: FR)
  Receive Date: 20190416
  Receipt Date: 20190423
  Transmission Date: 20190711
  Serious: Yes (Death, Hospitalization)
  Sender: FDA-Public Use
  Company Number: FR-EXELIXIS-XL18419020107

PATIENT
  Age: 57 Year
  Sex: Male
  Weight: 56 kg

DRUGS (3)
  1. CABOZANTINIB [Suspect]
     Active Substance: CABOZANTINIB
     Dosage: 20 MG, QD
     Route: 048
     Dates: start: 20170916, end: 20180313
  2. CABOZANTINIB [Suspect]
     Active Substance: CABOZANTINIB
     Indication: RENAL CELL CARCINOMA
     Dosage: 60 MG, QD
     Route: 048
     Dates: start: 20170220, end: 2017
  3. CABOZANTINIB [Suspect]
     Active Substance: CABOZANTINIB
     Dosage: 40 MG, QD
     Route: 048
     Dates: start: 2017, end: 2017

REACTIONS (11)
  - Decreased appetite [Recovered/Resolved]
  - Mucosal inflammation [Recovered/Resolved]
  - Stomatitis [Recovered/Resolved]
  - Diarrhoea [Unknown]
  - Asthenia [Not Recovered/Not Resolved]
  - Cachexia [Recovered/Resolved]
  - Poor dental condition [Recovered/Resolved]
  - Haemorrhoids [Recovered/Resolved]
  - Gingivitis [Recovered/Resolved]
  - General physical health deterioration [Recovered/Resolved]
  - Night sweats [Unknown]

NARRATIVE: CASE EVENT DATE: 2017
